FAERS Safety Report 4405388-3 (Version None)
Quarter: 2004Q3

REPORT INFORMATION
  Report Type: 
  Country: None (occurrence: None)
  Receive Date: 20040720
  Receipt Date: 20040705
  Transmission Date: 20050211
  Serious: Yes (Other)
  Sender: FDA-Public Use
  Company Number: GB-JNJFOC-20040700825

PATIENT
  Age: 24 Year
  Sex: Male
  Weight: 62 kg

DRUGS (2)
  1. LOPERAMIDE [Suspect]
     Indication: DIARRHOEA
     Dosage: 2 MG, 3 IN 1 DAY, ORAL
     Route: 048
     Dates: start: 20040611, end: 20040611
  2. NICORETTE [Concomitant]

REACTIONS (2)
  - DYSPNOEA [None]
  - WHEEZING [None]
